FAERS Safety Report 8500890-7 (Version None)
Quarter: 2012Q3

REPORT INFORMATION
  Report Type: 
  Country: None (occurrence: None)
  Receive Date: 20120710
  Receipt Date: 20120705
  Transmission Date: 20120928
  Serious: Yes (Other)
  Sender: FDA-Public Use
  Company Number: PHHY2012AT055568

PATIENT
  Age: 36 Year
  Sex: Male

DRUGS (5)
  1. GILENYA [Suspect]
     Indication: MULTIPLE SCLEROSIS
     Dosage: 0.5 MG, QD
     Route: 048
     Dates: start: 20120313, end: 20120629
  2. EUTHYROX [Concomitant]
     Indication: HYPOTHYROIDISM
     Dosage: 75 MG, QD
     Route: 048
  3. LYRICA [Concomitant]
     Indication: NEURALGIA
     Dosage: 150 MG, QD
     Route: 048
  4. VIAGRA [Concomitant]
     Indication: ERECTILE DYSFUNCTION
     Dosage: UNK UKN, UNK
  5. OMEPRAZOLE [Concomitant]
     Indication: GASTRITIS
     Dosage: 40 MG, QD
     Route: 048

REACTIONS (5)
  - HEPATOBILIARY DISEASE [None]
  - GAMMA-GLUTAMYLTRANSFERASE INCREASED [None]
  - ALANINE AMINOTRANSFERASE INCREASED [None]
  - ASPARTATE AMINOTRANSFERASE INCREASED [None]
  - HEPATIC ENZYME INCREASED [None]
